FAERS Safety Report 21747458 (Version 1)
Quarter: 2022Q4

REPORT INFORMATION
  Report Type: Spontaneous
  Country: IL (occurrence: IL)
  Receive Date: 20221219
  Receipt Date: 20221219
  Transmission Date: 20230112
  Serious: Yes (Other)
  Sender: FDA-Public Use
  Company Number: IL-MYLANLABS-2022M1140180

PATIENT
  Sex: Male

DRUGS (11)
  1. PHENYTOIN [Suspect]
     Active Substance: PHENYTOIN
     Indication: Neonatal epileptic seizure
     Dosage: 20 MILLIGRAM/KILOGRAM
     Route: 065
  2. PHENOBARBITAL [Suspect]
     Active Substance: PHENOBARBITAL
     Indication: Neonatal epileptic seizure
     Dosage: 20 MILLIGRAM/KILOGRAM
     Route: 065
  3. LEVETIRACETAM [Suspect]
     Active Substance: LEVETIRACETAM
     Indication: Neonatal epileptic seizure
     Dosage: 40 MILLIGRAM/KILOGRAM
     Route: 065
  4. VALPROIC ACID [Suspect]
     Active Substance: VALPROIC ACID
     Indication: Neonatal epileptic seizure
     Dosage: 30 MILLIGRAM/KILOGRAM
     Route: 065
  5. CARBAMAZEPINE [Suspect]
     Active Substance: CARBAMAZEPINE
     Indication: Neonatal epileptic seizure
     Dosage: 20 MILLIGRAM/KILOGRAM
     Route: 065
  6. TOPIRAMATE [Suspect]
     Active Substance: TOPIRAMATE
     Indication: Neonatal epileptic seizure
     Dosage: 10 MILLIGRAM/KILOGRAM
     Route: 065
  7. CLONAZEPAM [Suspect]
     Active Substance: CLONAZEPAM
     Indication: Neonatal epileptic seizure
     Dosage: 0.1 MILLIGRAM/KILOGRAM
     Route: 065
  8. DIAZEPAM [Suspect]
     Active Substance: DIAZEPAM
     Indication: Neonatal epileptic seizure
     Dosage: UNK
     Route: 048
  9. EZOGABINE [Concomitant]
     Active Substance: EZOGABINE
     Indication: Neonatal epileptic seizure
     Dosage: UNK, RETIGABINE TABLETS WERE CRUSHED AND ADMINISTERED THROUGH GASTROSTOMY TUBE
     Route: 065
  10. EZOGABINE [Concomitant]
     Active Substance: EZOGABINE
     Dosage: 15 MILLIGRAM/KILOGRAM (GRADUALLY INCREASED UP TO 15 MG/KG (RETIGABINE TABLETS WERE CRUSHED...
     Route: 065
  11. POTASSIUM BROMIDE [Concomitant]
     Active Substance: POTASSIUM BROMIDE
     Indication: Neonatal epileptic seizure
     Dosage: 40 MILLIGRAM/KILOGRAM
     Route: 065

REACTIONS (1)
  - Drug ineffective [Unknown]
